FAERS Safety Report 8214990-2 (Version None)
Quarter: 2012Q1

REPORT INFORMATION
  Report Type: 
  Country: None (occurrence: None)
  Receive Date: 20120229
  Receipt Date: 20111212
  Transmission Date: 20120608
  Serious: Yes (Hospitalization)
  Sender: FDA-Public Use
  Company Number: PHHY2011US52397

PATIENT
  Sex: Female

DRUGS (3)
  1. METHYLPREDNISOLONE [Concomitant]
  2. AZATHIOPRINE [Concomitant]
  3. NEORAL [Suspect]
     Indication: PROPHYLAXIS AGAINST TRANSPLANT REJECTION

REACTIONS (1)
  - MATERNAL EXPOSURE TIMING UNSPECIFIED [None]
